FAERS Safety Report 21051182 (Version 1)
Quarter: 2022Q3

REPORT INFORMATION
  Report Type: Spontaneous
  Country: SE (occurrence: SE)
  Receive Date: 20220707
  Receipt Date: 20220707
  Transmission Date: 20221026
  Serious: Yes (Life-Threatening)
  Sender: FDA-Public Use
  Company Number: None

PATIENT
  Age: 16 Year
  Sex: Male
  Weight: 61 kg

DRUGS (4)
  1. ISOTRETINOIN [Suspect]
     Active Substance: ISOTRETINOIN
     Indication: Acne
     Dosage: 60 MILLIGRAM DAILY; 20 MG, 3 TABLETS ONCE A DAY
     Route: 048
     Dates: start: 202112, end: 20220323
  2. ISOTRETINOIN [Suspect]
     Active Substance: ISOTRETINOIN
     Dosage: 30 MILLIGRAM DAILY; 10MG, 3 TABLETS ONCE A DAY
     Route: 048
     Dates: start: 20220518, end: 20220601
  3. MELATONIN [Concomitant]
     Active Substance: MELATONIN
     Indication: Product used for unknown indication
     Dosage: FORM STRENGTH 3MG, 1-4 VB TN, MAX 4 / NIGHT
     Route: 048
     Dates: start: 20220405
  4. FLUOXETIN MYLAN [Concomitant]
     Indication: Product used for unknown indication
     Dosage: 3 DOSAGE FORMS DAILY; FORM STRENGTH 20MG, 3 CAPSULES IN THE MORNING
     Route: 048
     Dates: start: 20220311

REACTIONS (2)
  - Suicide attempt [Not Recovered/Not Resolved]
  - Intentional overdose [Not Recovered/Not Resolved]

NARRATIVE: CASE EVENT DATE: 20220323
